FAERS Safety Report 6280102-8 (Version None)
Quarter: 2009Q3

REPORT INFORMATION
  Report Type: 
  Country: None (occurrence: None)
  Receive Date: 20090723
  Receipt Date: 20090715
  Transmission Date: 20100115
  Serious: Yes (Hospitalization)
  Sender: FDA-Public Use
  Company Number: US-AMGEN-QUU355995

PATIENT
  Sex: Male

DRUGS (1)
  1. ENBREL [Suspect]
     Indication: ANKYLOSING SPONDYLITIS
     Route: 058

REACTIONS (4)
  - ARTHRALGIA [None]
  - DRUG EFFECT DECREASED [None]
  - HIP ARTHROPLASTY [None]
  - JOINT EFFUSION [None]
